FAERS Safety Report 12775981 (Version 1)
Quarter: 2016Q3

REPORT INFORMATION
  Report Type: Spontaneous
  Country: SE (occurrence: SE)
  Receive Date: 20160923
  Receipt Date: 20160923
  Transmission Date: 20161109
  Serious: Yes (Other)
  Sender: FDA-Public Use
  Company Number: SE-NOVOPROD-482816

PATIENT
  Age: 27 Year
  Sex: Female

DRUGS (3)
  1. TRESIBA [Suspect]
     Active Substance: INSULIN DEGLUDEC
     Indication: TYPE 1 DIABETES MELLITUS
     Dosage: 25 IU, QD
     Route: 058
     Dates: start: 201308, end: 201408
  2. CERAZETTE                          /00011001/ [Concomitant]
     Active Substance: DESOGESTREL
     Indication: ORAL CONTRACEPTION
     Dosage: UNK
     Route: 065
     Dates: start: 201403
  3. NOVORAPID [Concomitant]
     Active Substance: INSULIN ASPART
     Indication: TYPE 1 DIABETES MELLITUS
     Dosage: 34 IU, QD
     Route: 058

REACTIONS (3)
  - Hyperemesis gravidarum [Recovered/Resolved]
  - Exposure during pregnancy [Recovered/Resolved]
  - Premature delivery [Unknown]

NARRATIVE: CASE EVENT DATE: 201407
